FAERS Safety Report 12785563 (Version 2)
Quarter: 2016Q4

REPORT INFORMATION
  Report Type: Spontaneous
  Country: JP (occurrence: JP)
  Receive Date: 20160927
  Receipt Date: 20161027
  Transmission Date: 20170207
  Serious: Yes (Life-Threatening, Hospitalization, Other)
  Sender: FDA-Public Use
  Company Number: JP-PFIZER INC-2016449302

PATIENT
  Age: 66 Year
  Sex: Male

DRUGS (3)
  1. GANCICLOVIR. [Concomitant]
     Active Substance: GANCICLOVIR
     Indication: CYTOMEGALOVIRUS INFECTION
     Dosage: POD 64
  2. HYDROCORTISONE SODIUM SUCCINATE [Suspect]
     Active Substance: HYDROCORTISONE SODIUM SUCCINATE
     Indication: ACUTE RESPIRATORY DISTRESS SYNDROME
     Dosage: UNK
  3. PREDNISONE. [Suspect]
     Active Substance: PREDNISONE
     Indication: ACUTE RESPIRATORY DISTRESS SYNDROME
     Dosage: 20 MG, DAILY
     Route: 048

REACTIONS (4)
  - Ascites [Recovering/Resolving]
  - Condition aggravated [Recovering/Resolving]
  - Hepatitis cholestatic [Not Recovered/Not Resolved]
  - Hepatitis C [Recovering/Resolving]
